FAERS Safety Report 14900628 (Version 2)
Quarter: 2018Q2

REPORT INFORMATION
  Report Type: Spontaneous
  Country: JP (occurrence: JP)
  Receive Date: 20180516
  Receipt Date: 20180516
  Transmission Date: 20180711
  Serious: Yes (Other)
  Sender: FDA-Public Use
  Company Number: JP-BAYER-2018-088158

PATIENT
  Sex: Male

DRUGS (1)
  1. BAYASPIRIN 100 MG [Suspect]
     Active Substance: ASPIRIN
     Dosage: UNK
     Route: 048
     Dates: start: 2008

REACTIONS (6)
  - Gastric ulcer [None]
  - Abdominal pain [None]
  - Abdominal discomfort [None]
  - Intentional product misuse [None]
  - Toothache [None]
  - Drug administration error [None]
